FAERS Safety Report 23566682 (Version 1)
Quarter: 2024Q1

REPORT INFORMATION
  Report Type: Spontaneous
  Country: US (occurrence: US)
  Receive Date: 20240226
  Receipt Date: 20240226
  Transmission Date: 20240409
  Serious: No
  Sender: FDA-Public Use
  Company Number: US-AMNEAL PHARMACEUTICALS-2023-AMRX-01078

PATIENT
  Sex: Female
  Weight: 68.027 kg

DRUGS (5)
  1. RYTARY [Suspect]
     Active Substance: CARBIDOPA\LEVODOPA
     Indication: Product used for unknown indication
     Dosage: 3 CAPSULES(23.75/95MG), 5 /DAY
     Route: 048
     Dates: start: 20230301, end: 20230318
  2. GABAPENTIN [Concomitant]
     Active Substance: GABAPENTIN
     Indication: Product used for unknown indication
     Dosage: 100MG CAPSULE
     Route: 065
  3. MELATONIN [Concomitant]
     Active Substance: MELATONIN
     Indication: Sleep disorder
     Dosage: MG CAPSULES, 1 /DAY AT BEDTIME
     Route: 065
  4. PAROXETINE [Concomitant]
     Active Substance: PAROXETINE
     Indication: Anticoagulant therapy
     Dosage: 10 MG CAPSULES,1 /DAY
     Route: 065
  5. SIMVASTATIN [Concomitant]
     Active Substance: SIMVASTATIN
     Indication: Blood pressure measurement
     Dosage: 40 MG TABLET, 1 /DAY
     Route: 065

REACTIONS (3)
  - Fatigue [Unknown]
  - Hypokinesia [Unknown]
  - Drug ineffective [Unknown]
